FAERS Safety Report 13288119 (Version 2)
Quarter: 2017Q1

REPORT INFORMATION
  Report Type: Spontaneous
  Country: BR (occurrence: BR)
  Receive Date: 20170302
  Receipt Date: 20170317
  Transmission Date: 20170428
  Serious: Yes (Death, Hospitalization)
  Sender: FDA-Public Use
  Company Number: BR-B.I. PHARMACEUTICALS,INC./RIDGEFIELD-2017-BI-011506

PATIENT
  Age: 73 Year
  Sex: Female

DRUGS (4)
  1. HIDROCLOROTIAZIDA [Concomitant]
     Active Substance: HYDROCHLOROTHIAZIDE
     Indication: HYPERTENSION
     Route: 065
  2. ATENOLOL. [Concomitant]
     Active Substance: ATENOLOL
     Indication: HYPERTENSION
     Route: 065
  3. OFEV [Suspect]
     Active Substance: NINTEDANIB
     Indication: PRODUCT USED FOR UNKNOWN INDICATION
     Dosage: UNIT DOSE: 150, DAILY DOSE: 300
     Route: 065
     Dates: start: 20160903, end: 20160919
  4. OMEPRAZOL [Concomitant]
     Active Substance: OMEPRAZOLE
     Indication: DYSPEPSIA
     Route: 065

REACTIONS (2)
  - Respiratory tract infection [Recovered/Resolved]
  - Respiratory tract infection [Fatal]

NARRATIVE: CASE EVENT DATE: 20160921
